FAERS Safety Report 6027391-2 (Version None)
Quarter: 2009Q1

REPORT INFORMATION
  Report Type: 
  Country: None (occurrence: None)
  Receive Date: 20090105
  Receipt Date: 20081222
  Transmission Date: 20090719
  Serious: Yes (Other)
  Sender: FDA-Public Use
  Company Number: BR-PFIZER INC-2006137003

PATIENT

DRUGS (6)
  1. DEPO-MEDROL [Suspect]
     Indication: RECTAL HAEMORRHAGE
     Dosage: 80 MG, 2X/DAY
     Route: 054
     Dates: start: 20061012, end: 20061028
  2. ZYVOX [Suspect]
     Indication: BACTERIAL INFECTION
     Dosage: UNK
     Route: 048
     Dates: start: 20081222
  3. BALCOR [Concomitant]
     Route: 048
  4. CLONAZEPAM [Concomitant]
     Route: 048
  5. CLARITHROMYCIN [Concomitant]
     Dosage: UNK
  6. MINOCYCLINE HYDROCHLORIDE [Concomitant]
     Dosage: UNK

REACTIONS (3)
  - ABDOMINAL PAIN [None]
  - GASTROINTESTINAL MOTILITY DISORDER [None]
  - RECTAL HAEMORRHAGE [None]
